FAERS Safety Report 9759706 (Version 1)
Quarter: 2013Q4

REPORT INFORMATION
  Report Type: Spontaneous
  Country: US (occurrence: US)
  Receive Date: 20131216
  Receipt Date: 20131216
  Transmission Date: 20140711
  Serious: No
  Sender: FDA-Public Use
  Company Number: US-GILEAD-2010-0029034

PATIENT
  Age: 71 Year
  Sex: Female
  Weight: 78.02 kg

DRUGS (8)
  1. LETAIRIS [Suspect]
     Indication: PULMONARY ARTERIAL HYPERTENSION
     Route: 048
     Dates: start: 20081101
  2. SPIRONOLACTONE [Concomitant]
  3. CELEXA [Concomitant]
  4. PLAVIX [Concomitant]
  5. LIPITOR [Concomitant]
  6. COUMADIN [Concomitant]
  7. METOPROLOL [Concomitant]
  8. LASIX [Concomitant]

REACTIONS (1)
  - Nasal congestion [Unknown]
